FAERS Safety Report 11130585 (Version 2)
Quarter: 2015Q3

REPORT INFORMATION
  Report Type: Report from Study
  Country: US (occurrence: US)
  Receive Date: 20150522
  Receipt Date: 20150929
  Transmission Date: 20151125
  Serious: Yes (Death, Hospitalization)
  Sender: FDA-Public Use
  Company Number: US-BAYER-2015-012505

PATIENT
  Age: 76 Year
  Sex: Male

DRUGS (6)
  1. ADEMPAS [Suspect]
     Active Substance: RIOCIGUAT
     Indication: PULMONARY HYPERTENSION
     Dosage: 0.5 MG, TID
     Route: 048
     Dates: start: 20150303
  2. ADEMPAS [Suspect]
     Active Substance: RIOCIGUAT
     Indication: PULMONARY HYPERTENSION
     Dosage: 0.25 MG, TID
     Route: 048
     Dates: end: 20150220
  3. ADEMPAS [Suspect]
     Active Substance: RIOCIGUAT
     Indication: PULMONARY HYPERTENSION
     Dosage: 0.25 MG, TID
     Route: 048
     Dates: end: 20150220
  4. NORVASC [Concomitant]
     Active Substance: AMLODIPINE BESYLATE
  5. ADEMPAS [Suspect]
     Active Substance: RIOCIGUAT
     Indication: PULMONARY HYPERTENSION
     Dosage: 0.5 MG, TID
     Route: 048
     Dates: start: 20141231
  6. ADEMPAS [Suspect]
     Active Substance: RIOCIGUAT
     Indication: PULMONARY HYPERTENSION
     Dosage: UNK
     Route: 048
     Dates: start: 20141229

REACTIONS (11)
  - Acute kidney injury [None]
  - Creatinine renal clearance decreased [None]
  - Hypotension [Recovered/Resolved]
  - Polyuria [None]
  - Blood potassium decreased [None]
  - Hypotension [Unknown]
  - Dizziness [None]
  - Glomerular filtration rate decreased [None]
  - Death [Fatal]
  - Headache [Unknown]
  - Dialysis [Unknown]

NARRATIVE: CASE EVENT DATE: 201502
